FAERS Safety Report 5835393-1 (Version None)
Quarter: 2008Q3

REPORT INFORMATION
  Report Type: 
  Country: None (occurrence: None)
  Receive Date: 20080731
  Receipt Date: 20080718
  Transmission Date: 20090109
  Serious: Yes (Hospitalization)
  Sender: FDA-Public Use
  Company Number: B0530940A

PATIENT
  Age: 49 Year
  Sex: Female

DRUGS (8)
  1. FLUTICASONE PROPIONATE+SALMETEROL XINAFOATE UNSPECIFIED INHA (FLUTICAS [Suspect]
     Indication: ASTHMA
  2. ALBUTEROL SULFATE [Suspect]
     Indication: ASTHMA
  3. FLUTICASONE PROPIONATE [Concomitant]
  4. AZELASTINE HCL [Concomitant]
  5. IPRATROPIUM BROMIDE [Concomitant]
  6. WARFARIN SODIUM [Concomitant]
  7. PANTOPRAZOLE [Concomitant]
  8. HYDROCHLOROTHIAZIDE [Concomitant]

REACTIONS (9)
  - ASTHMA [None]
  - CYSTITIS ESCHERICHIA [None]
  - DIZZINESS [None]
  - HYPERGLYCAEMIA [None]
  - HYPOCALCAEMIA [None]
  - HYPOPHOSPHATAEMIA [None]
  - NO THERAPEUTIC RESPONSE [None]
  - OEDEMA PERIPHERAL [None]
  - PNEUMONIA [None]
